FAERS Safety Report 19470496 (Version 8)
Quarter: 2023Q2

REPORT INFORMATION
  Report Type: Report from Study
  Country: AU (occurrence: AU)
  Receive Date: 20210629
  Receipt Date: 20230619
  Transmission Date: 20230722
  Serious: Yes (Life-Threatening, Hospitalization, Other)
  Sender: FDA-Public Use
  Company Number: NVSC2021AU104535

PATIENT
  Age: 72 Year
  Sex: Male
  Weight: 63.2 kg

DRUGS (43)
  1. KYMRIAH [Suspect]
     Active Substance: TISAGENLECLEUCEL
     Indication: Mantle cell lymphoma
     Dosage: NO TREATMENT
     Route: 065
  2. KYMRIAH [Suspect]
     Active Substance: TISAGENLECLEUCEL
     Dosage: 0.6-6.0 X 108 CAR-POSITIVE VIABLE T CELL
     Route: 042
     Dates: start: 20210615, end: 20210615
  3. IBRUTINIB [Suspect]
     Active Substance: IBRUTINIB
     Indication: Mantle cell lymphoma
     Dosage: 560 MG
     Route: 048
     Dates: start: 20210422
  4. CYCLOPHOSPHAMIDE [Concomitant]
     Active Substance: CYCLOPHOSPHAMIDE
     Indication: Mantle cell lymphoma
     Dosage: 418 MG, UNKNOWN
     Route: 042
     Dates: start: 20210610
  5. CYCLOPHOSPHAMIDE [Concomitant]
     Active Substance: CYCLOPHOSPHAMIDE
     Dosage: 250 MG/M2
     Route: 042
     Dates: start: 20210401, end: 20210403
  6. FLUDARABINE [Concomitant]
     Active Substance: FLUDARABINE PHOSPHATE
     Indication: Mantle cell lymphoma
     Dosage: 42 MG, UNKNOWN
     Route: 042
     Dates: start: 20210610
  7. FLUDARABINE [Concomitant]
     Active Substance: FLUDARABINE PHOSPHATE
     Dosage: 25 MG/M2
     Route: 042
     Dates: start: 20210401, end: 20210403
  8. ALLOPURINOL [Concomitant]
     Active Substance: ALLOPURINOL
     Indication: Mantle cell lymphoma
     Dosage: 300 MG, QD
     Route: 048
     Dates: start: 202101
  9. ALLOPURINOL [Concomitant]
     Active Substance: ALLOPURINOL
     Indication: Blood uric acid decreased
  10. CHOLECALCIFEROL [Concomitant]
     Active Substance: CHOLECALCIFEROL
     Indication: Electrolyte imbalance
     Dosage: 25 UG 1 IN 1 DAY
     Route: 048
     Dates: start: 20210427
  11. IBRUTINIB [Concomitant]
     Active Substance: IBRUTINIB
     Indication: Mantle cell lymphoma
     Dosage: 560 MG, OD
     Route: 048
     Dates: start: 20210330
  12. MINERALS\VITAMINS [Concomitant]
     Active Substance: MINERALS\VITAMINS
     Indication: Malnutrition
     Dosage: 1 TABLET
     Route: 048
     Dates: start: 20210507
  13. MINERALS\VITAMINS [Concomitant]
     Active Substance: MINERALS\VITAMINS
     Indication: Depilation
  14. NYSTATIN [Concomitant]
     Active Substance: NYSTATIN
     Indication: Oral candidiasis
     Dosage: UNK, TDI
     Route: 048
     Dates: start: 202101
  15. VALTREX [Concomitant]
     Active Substance: VALACYCLOVIR HYDROCHLORIDE
     Indication: Mantle cell lymphoma
     Dosage: 500 MG, OD
     Route: 048
     Dates: start: 202101
  16. RESPIRIN [Concomitant]
     Indication: Mantle cell lymphoma
     Dosage: UNK UNK, 3X WEEK
     Route: 048
     Dates: start: 202101
  17. PANTOPRAZOLE [Concomitant]
     Active Substance: PANTOPRAZOLE
     Indication: Dyspepsia
     Dosage: 40 MG, OD
     Route: 048
     Dates: start: 20210425
  18. PANTOPRAZOLE [Concomitant]
     Active Substance: PANTOPRAZOLE
     Dosage: 40 MG, OD
     Route: 048
     Dates: start: 20210426
  19. POTASSIUM CHLORIDE [Concomitant]
     Active Substance: POTASSIUM CHLORIDE
     Indication: Blood potassium decreased
     Dosage: 600 MG, BD
     Route: 048
     Dates: start: 20210424
  20. POTASSIUM CHLORIDE [Concomitant]
     Active Substance: POTASSIUM CHLORIDE
     Dosage: 10 MMOL/ 100M/S
     Route: 042
     Dates: start: 20210509, end: 20210509
  21. POTASSIUM CHLORIDE [Concomitant]
     Active Substance: POTASSIUM CHLORIDE
     Dosage: 10 MMOL/ 100M/S
     Route: 042
     Dates: start: 20210510, end: 20210510
  22. METOCLOPRAMIDE [Concomitant]
     Active Substance: METOCLOPRAMIDE
     Indication: Nausea
     Dosage: 10 MG, PRN
     Route: 048
     Dates: start: 20210427
  23. ONDANSETRON [Concomitant]
     Active Substance: ONDANSETRON
     Indication: Nausea
     Dosage: 8 MG, PRN
     Route: 048
     Dates: start: 20210427
  24. OXALIPLATIN [Concomitant]
     Active Substance: OXALIPLATIN
     Indication: Chemotherapy
     Dosage: 170 MG, ONCE/SINGLE
     Route: 042
     Dates: start: 20210428
  25. GEMCITABINE [Concomitant]
     Active Substance: GEMCITABINE
     Indication: Chemotherapy
     Dosage: 1672 MG, ONCE/SINGLE
     Route: 042
     Dates: start: 20210428, end: 20210428
  26. SUCCINYLCHOLINE CHLORIDE [Concomitant]
     Active Substance: SUCCINYLCHOLINE CHLORIDE
     Indication: Anaesthesia
     Dosage: 100 MG
     Route: 042
     Dates: start: 20210615
  27. VANCOMYCIN [Concomitant]
     Active Substance: VANCOMYCIN
     Indication: Antibiotic prophylaxis
     Dosage: 1 G
     Route: 042
     Dates: start: 20210618
  28. FENTANYL [Concomitant]
     Active Substance: FENTANYL
     Indication: Sedation
     Dosage: 100 MCG, INJ
     Route: 042
     Dates: start: 20210618
  29. MAGNESIUM SULFATE [Concomitant]
     Active Substance: MAGNESIUM SULFATE
     Indication: Blood magnesium decreased
     Dosage: 20 MMOL/ 10M/S
     Route: 042
     Dates: start: 20210512, end: 20210512
  30. VALACYCLOVIR HYDROCHLORIDE [Concomitant]
     Active Substance: VALACYCLOVIR HYDROCHLORIDE
     Indication: Antiviral prophylaxis
     Dosage: 500 MG, DAILY
     Route: 048
     Dates: start: 202101
  31. LEVETIRACETAM [Concomitant]
     Active Substance: LEVETIRACETAM
     Indication: Anticonvulsant drug level therapeutic
     Dosage: 250 MG, DAILY
     Route: 048
     Dates: start: 20210615
  32. FLUCONAZOLE [Concomitant]
     Active Substance: FLUCONAZOLE
     Indication: Antifungal prophylaxis
     Dosage: 200 MG, DAILY
     Route: 048
     Dates: start: 20210611
  33. THIAMINE [Concomitant]
     Active Substance: THIAMINE
     Indication: Electrolyte imbalance
     Dosage: 100 MG, DAILY
     Route: 048
     Dates: start: 20210507
  34. POTASSIUM PHOSPHATE [Concomitant]
     Active Substance: POTASSIUM PHOSPHATE
     Indication: Blood potassium decreased
     Dosage: 10 MMOL/ 10 M/S
     Route: 042
     Dates: start: 20210509, end: 20210509
  35. ACETAMINOPHEN [Concomitant]
     Active Substance: ACETAMINOPHEN
     Indication: Pain
     Dosage: 1000 MG, PRN
     Route: 048
     Dates: start: 20210510
  36. ACETAMINOPHEN [Concomitant]
     Active Substance: ACETAMINOPHEN
     Dosage: 1G/100 ML
     Route: 065
     Dates: start: 20210618, end: 20210622
  37. GENTAMICIN [Concomitant]
     Active Substance: GENTAMICIN
     Indication: Antibiotic prophylaxis
     Dosage: 240 MG
     Route: 065
     Dates: start: 20210618, end: 20210618
  38. TOCILIZUMAB [Concomitant]
     Active Substance: TOCILIZUMAB
     Indication: Cytokine release syndrome
     Dosage: 480 MG, STAT
     Route: 065
     Dates: start: 20210618, end: 20210618
  39. TOCILIZUMAB [Concomitant]
     Active Substance: TOCILIZUMAB
     Dosage: 480 MG, STAT
     Route: 065
     Dates: start: 20210621, end: 20210621
  40. DEXAMETHASONE [Concomitant]
     Active Substance: DEXAMETHASONE
     Indication: Cytokine release syndrome
     Dosage: 4 MG, STAT
     Route: 065
     Dates: start: 20210618, end: 20210618
  41. DEXAMETHASONE [Concomitant]
     Active Substance: DEXAMETHASONE
     Dosage: 4 MG, STAT
     Route: 065
     Dates: start: 20210621, end: 20210621
  42. DEXAMETHASONE [Concomitant]
     Active Substance: DEXAMETHASONE
     Dosage: 4 MG, STAT
     Route: 065
     Dates: start: 20210622, end: 20210622
  43. DEXAMETHASONE [Concomitant]
     Active Substance: DEXAMETHASONE
     Dosage: 6 MG
     Route: 048
     Dates: start: 20220216

REACTIONS (3)
  - Tumour flare [Recovered/Resolved]
  - Stomatitis [Recovered/Resolved]
  - Chondrocalcinosis [Recovered/Resolved]

NARRATIVE: CASE EVENT DATE: 20210507
